FAERS Safety Report 7922188-8 (Version None)
Quarter: 2011Q4

REPORT INFORMATION
  Report Type: 
  Country: None (occurrence: None)
  Receive Date: 20111117
  Receipt Date: 20110124
  Transmission Date: 20120403
  Serious: No
  Sender: FDA-Public Use
  Company Number: US-AMGEN-USASP2011001376

PATIENT
  Age: 50 Year
  Sex: Female
  Weight: 61.224 kg

DRUGS (1)
  1. ENBREL [Suspect]
     Indication: RHEUMATOID ARTHRITIS
     Dosage: 50 MG, QWK
     Route: 058
     Dates: start: 20070201, end: 20101230

REACTIONS (3)
  - THERAPEUTIC RESPONSE DECREASED [None]
  - ARTHRALGIA [None]
  - JOINT SWELLING [None]
